FAERS Safety Report 19377758 (Version 1)
Quarter: 2021Q2

REPORT INFORMATION
  Report Type: Spontaneous
  Country: TR (occurrence: TR)
  Receive Date: 20210605
  Receipt Date: 20210605
  Transmission Date: 20210717
  Serious: Yes (Other)
  Sender: FDA-Public Use
  Company Number: TR-ACCORD-226939

PATIENT
  Age: 10 Year
  Sex: Female

DRUGS (2)
  1. OXALIPLATIN. [Suspect]
     Active Substance: OXALIPLATIN
     Indication: DESMOPLASTIC SMALL ROUND CELL TUMOUR
     Route: 033
  2. IRINOTECAN [Suspect]
     Active Substance: IRINOTECAN
     Indication: DESMOPLASTIC SMALL ROUND CELL TUMOUR
     Route: 033

REACTIONS (3)
  - Nephropathy toxic [Recovered/Resolved]
  - Renal tubular disorder [Recovered/Resolved]
  - Hypokalaemia [Recovered/Resolved]
